FAERS Safety Report 6566429-0 (Version None)
Quarter: 2010Q1

REPORT INFORMATION
  Report Type: 
  Country: None (occurrence: None)
  Receive Date: 20100202
  Receipt Date: 20100120
  Transmission Date: 20100710
  Serious: Yes (Other)
  Sender: FDA-Public Use
  Company Number: PHHY2009JP14144

PATIENT
  Sex: Female

DRUGS (5)
  1. ZOMETA [Suspect]
     Indication: METASTASES TO BONE
     Dosage: UNK
     Dates: start: 20070704, end: 20090305
  2. ZOMETA [Suspect]
     Dosage: UNK
     Dates: end: 20090305
  3. CHEMOTHERAPEUTICS NOS [Concomitant]
  4. TOREMIFENE CITRATE [Concomitant]
     Indication: METASTASES TO BONE
     Dosage: 120 MG, UNK
     Route: 048
     Dates: start: 20070618, end: 20070829
  5. CAPECITABINE [Concomitant]
     Indication: METASTASES TO BONE
     Dosage: 2400 MG, UNK
     Route: 048
     Dates: start: 20070830, end: 20090205

REACTIONS (14)
  - BLOOD CREATININE INCREASED [None]
  - BONE DISORDER [None]
  - DENTAL CARIES [None]
  - GINGIVAL PAIN [None]
  - GINGIVAL ULCERATION [None]
  - GINGIVITIS [None]
  - HAEMATOCRIT DECREASED [None]
  - HAEMOGLOBIN DECREASED [None]
  - OSTEONECROSIS [None]
  - PAIN [None]
  - PERIODONTITIS [None]
  - PYREXIA [None]
  - TOOTH LOSS [None]
  - TOOTHACHE [None]
